FAERS Safety Report 24378708 (Version 1)
Quarter: 2024Q3

REPORT INFORMATION
  Report Type: Spontaneous
  Country: US (occurrence: None)
  Receive Date: 20240929
  Receipt Date: 20240929
  Transmission Date: 20241017
  Serious: No
  Sender: Public
  Company Number: None

PATIENT
  Age: 51 Year
  Sex: Female
  Weight: 82.26 kg

DRUGS (16)
  1. ENBREL [Suspect]
     Active Substance: ETANERCEPT
     Indication: Arthritis
     Dosage: 1 INJECTION DAILY SUBCUTANEOUS ?
     Route: 058
     Dates: start: 20240918
  2. NOVOLOG [Concomitant]
     Active Substance: INSULIN ASPART
  3. AMLODIPINE BESYLATE [Concomitant]
     Active Substance: AMLODIPINE BESYLATE
  4. OLMESARTAN [Concomitant]
     Active Substance: OLMESARTAN
  5. ROSUVASTATIN [Concomitant]
     Active Substance: ROSUVASTATIN\ROSUVASTATIN CALCIUM
  6. CYCLOBENZAPRINE [Concomitant]
     Active Substance: CYCLOBENZAPRINE
  7. WEGOVY [Concomitant]
     Active Substance: SEMAGLUTIDE
  8. MELOXICAM [Concomitant]
     Active Substance: MELOXICAM
  9. VSHRED - BURN [Concomitant]
  10. VSHRED - BURM pm [Concomitant]
  11. TURMERIC BLACK [Concomitant]
  12. VITAMIN B12 [Concomitant]
     Active Substance: CYANOCOBALAMIN
  13. DIGESTIVE ADVANTAGE PRIOBIOTIC [Concomitant]
  14. VITAMIN D3 [Concomitant]
     Active Substance: CHOLECALCIFEROL
  15. ASTAXATHAN [Concomitant]
  16. COENZYME Q10 [Concomitant]
     Active Substance: DIETARY SUPPLEMENT\UBIDECARENONE

REACTIONS (4)
  - Injection site swelling [None]
  - Injection site erythema [None]
  - Injection site rash [None]
  - Pruritus [None]

NARRATIVE: CASE EVENT DATE: 20240920
